FAERS Safety Report 4887980-5 (Version None)
Quarter: 2006Q1

REPORT INFORMATION
  Report Type: 
  Country: None (occurrence: None)
  Receive Date: 20060123
  Receipt Date: 20051005
  Transmission Date: 20060701
  Serious: Yes (Hospitalization)
  Sender: FDA-Public Use
  Company Number: US-MERCK-0510USA04317

PATIENT
  Age: 70 Year
  Sex: Female
  Weight: 70 kg

DRUGS (5)
  1. VIOXX [Suspect]
     Indication: ARTHRITIS
     Route: 048
     Dates: start: 20000101, end: 20021201
  2. VITAMINS (UNSPECIFIED) [Concomitant]
     Route: 065
  3. VITAMIN E [Concomitant]
     Route: 065
  4. CALCIUM (UNSPECIFIED) [Concomitant]
     Route: 065
  5. LOPRESSOR [Concomitant]
     Route: 065

REACTIONS (13)
  - ANGINA PECTORIS [None]
  - ARTERIOSCLEROSIS CORONARY ARTERY [None]
  - ATELECTASIS [None]
  - ATRIAL FIBRILLATION [None]
  - CARDIOMEGALY [None]
  - CORONARY ARTERY DISEASE [None]
  - DIVERTICULUM [None]
  - HYPERLIPIDAEMIA [None]
  - IRRITABLE BOWEL SYNDROME [None]
  - MIGRAINE [None]
  - PLEURAL EFFUSION [None]
  - PNEUMOMEDIASTINUM [None]
  - SINUS TACHYCARDIA [None]
